FAERS Safety Report 25008934 (Version 1)
Quarter: 2025Q1

REPORT INFORMATION
  Report Type: Spontaneous
  Country: US (occurrence: None)
  Receive Date: 20250224
  Receipt Date: 20250224
  Transmission Date: 20250408
  Serious: Yes (Death)
  Sender: FDA-CTU
  Company Number: None

PATIENT
  Age: 77 Year
  Sex: Male

DRUGS (2)
  1. ASPIRIN [Suspect]
     Active Substance: ASPIRIN
  2. APIXABAN [Suspect]
     Active Substance: APIXABAN

REACTIONS (6)
  - Hemiparesis [None]
  - Atrial fibrillation [None]
  - Electrocardiogram QT prolonged [None]
  - Subarachnoid haemorrhage [None]
  - Intraventricular haemorrhage [None]
  - Aneurysm ruptured [None]

NARRATIVE: CASE EVENT DATE: 20231117
